FAERS Safety Report 15469175 (Version 1)
Quarter: 2018Q4

REPORT INFORMATION
  Report Type: Spontaneous
  Country: US (occurrence: US)
  Receive Date: 20181005
  Receipt Date: 20181005
  Transmission Date: 20190205
  Serious: Yes (Other)
  Sender: FDA-Public Use
  Company Number: US-BAYER-2017-194896

PATIENT
  Age: 23 Year
  Sex: Female

DRUGS (1)
  1. MIRENA [Suspect]
     Active Substance: LEVONORGESTREL
     Dosage: 20 MCG/24HR, CONT
     Route: 015
     Dates: start: 20160321

REACTIONS (13)
  - Device dislocation [Unknown]
  - Menorrhagia [Recovering/Resolving]
  - Fatigue [Recovering/Resolving]
  - Abdominal pain lower [Unknown]
  - Embedded device [Unknown]
  - Device breakage [Unknown]
  - Dysmenorrhoea [Recovering/Resolving]
  - Vaginal haemorrhage [Unknown]
  - Dyspareunia [Recovered/Resolved]
  - Back pain [Unknown]
  - Vaginal discharge [Recovered/Resolved]
  - Complication of device removal [Unknown]
  - Pelvic pain [Unknown]

NARRATIVE: CASE EVENT DATE: 20080630
